APPROVED DRUG PRODUCT: BENZONATATE
Active Ingredient: BENZONATATE
Strength: 200MG
Dosage Form/Route: CAPSULE;ORAL
Application: A202765 | Product #001 | TE Code: AA
Applicant: CSPC-NBP PHARMACEUTICAL CO LTD
Approved: Jul 31, 2015 | RLD: No | RS: No | Type: RX